FAERS Safety Report 6309153-1 (Version None)
Quarter: 2009Q3

REPORT INFORMATION
  Report Type: 
  Country: None (occurrence: None)
  Receive Date: 20090814
  Receipt Date: 20090428
  Transmission Date: 20100115
  Serious: No
  Sender: FDA-Public Use
  Company Number: A0783224A

PATIENT

DRUGS (2)
  1. COREG CR [Suspect]
     Indication: DRUG USE FOR UNKNOWN INDICATION
     Route: 048
  2. NO CONCURRENT MEDICATION [Concomitant]

REACTIONS (3)
  - DIZZINESS [None]
  - FATIGUE [None]
  - MALAISE [None]
